FAERS Safety Report 12075254 (Version 1)
Quarter: 2016Q1

REPORT INFORMATION
  Report Type: Spontaneous
  Country: US (occurrence: US)
  Receive Date: 20160212
  Receipt Date: 20160212
  Transmission Date: 20160526
  Serious: No
  Sender: FDA-Public Use
  Company Number: US-ASTRAZENECA-2016SE11756

PATIENT
  Sex: Female
  Weight: 127 kg

DRUGS (13)
  1. PRILOSEC [Suspect]
     Active Substance: OMEPRAZOLE MAGNESIUM
     Indication: ULCER
     Route: 048
  2. CRESTOR [Suspect]
     Active Substance: ROSUVASTATIN CALCIUM
     Indication: BLOOD CHOLESTEROL ABNORMAL
     Route: 048
  3. CARVEDILOL. [Concomitant]
     Active Substance: CARVEDILOL
     Route: 048
  4. LAMICTAL [Concomitant]
     Active Substance: LAMOTRIGINE
     Indication: ANTIDEPRESSANT THERAPY
     Route: 048
  5. DULOXETINE. [Concomitant]
     Active Substance: DULOXETINE
     Route: 048
  6. HYDROXAZINE [Concomitant]
     Indication: SLEEP DISORDER
  7. HYDRALAZINE [Concomitant]
     Active Substance: HYDRALAZINE HYDROCHLORIDE
     Route: 048
  8. BUSPAR [Concomitant]
     Active Substance: BUSPIRONE HYDROCHLORIDE
  9. COZAAR [Concomitant]
     Active Substance: LOSARTAN POTASSIUM
     Route: 048
  10. METFORMIN [Concomitant]
     Active Substance: METFORMIN HYDROCHLORIDE
     Route: 048
  11. BYDUREON [Suspect]
     Active Substance: EXENATIDE
     Indication: GLYCOSYLATED HAEMOGLOBIN INCREASED
     Route: 058
     Dates: start: 20151210
  12. BUMEX [Concomitant]
     Active Substance: BUMETANIDE
     Route: 048
  13. LOVAZA [Concomitant]
     Active Substance: OMEGA-3-ACID ETHYL ESTERS

REACTIONS (3)
  - Blood cholesterol increased [Unknown]
  - Injection site nodule [Not Recovered/Not Resolved]
  - Hypersensitivity [Unknown]
